FAERS Safety Report 21217315 (Version 1)
Quarter: 2022Q3

REPORT INFORMATION
  Report Type: Spontaneous
  Country: US (occurrence: US)
  Receive Date: 20220816
  Receipt Date: 20220816
  Transmission Date: 20221026
  Serious: No
  Sender: FDA-Public Use
  Company Number: US-BRISTOL-MYERS SQUIBB COMPANY-2022-090408

PATIENT
  Age: 59 Year
  Sex: Female
  Weight: 77.7 kg

DRUGS (1)
  1. SPRYCEL [Suspect]
     Active Substance: DASATINIB
     Indication: Chronic myeloid leukaemia
     Dosage: DOSE : 100 MG;     FREQ : DAILY
     Route: 048
     Dates: start: 2022

REACTIONS (2)
  - Scab [Not Recovered/Not Resolved]
  - Alopecia [Not Recovered/Not Resolved]
